FAERS Safety Report 11216677 (Version 2)
Quarter: 2015Q3

REPORT INFORMATION
  Report Type: Report from Study
  Country: US (occurrence: US)
  Receive Date: 20150624
  Receipt Date: 20150716
  Transmission Date: 20151125
  Serious: Yes (Other)
  Sender: FDA-Public Use
  Company Number: US-BAYER-2015-259166

PATIENT
  Age: 72 Year
  Sex: Female

DRUGS (12)
  1. LOMOTIL [DIPHENOXYLATE HYDROCHLORIDE] [Concomitant]
     Dosage: 2.5MG - 025MG
     Route: 048
  2. POTASSIUM CHLORIDE. [Concomitant]
     Active Substance: POTASSIUM CHLORIDE
     Dosage: 20MEQ, DAILY
     Route: 048
  3. STIVARGA [Suspect]
     Active Substance: REGORAFENIB
     Indication: COLORECTAL CANCER METASTATIC
     Dosage: 160 MG, QD
     Route: 048
     Dates: start: 20150509, end: 20150527
  4. HYDROCHLOROTHIAZID [Concomitant]
     Active Substance: HYDROCHLOROTHIAZIDE
     Dosage: 25MG
     Route: 048
  5. KEFLEX [Concomitant]
     Active Substance: CEPHALEXIN
     Dosage: 500MG, QID
     Route: 048
  6. ONDANSETRON HYDROCHLORIDE. [Concomitant]
     Active Substance: ONDANSETRON HYDROCHLORIDE
     Indication: NAUSEA
     Dosage: 8MG, Q8H
     Route: 048
  7. PROCHLORPERAZINE MALEATE. [Concomitant]
     Active Substance: PROCHLORPERAZINE MALEATE
     Indication: NAUSEA
     Dosage: 10MG, Q6H
     Route: 048
  8. SALICYLIC ACID. [Concomitant]
     Active Substance: SALICYLIC ACID
     Indication: PSORIASIS
  9. HYDROCODONE W/ACETAMINOPHEN [Concomitant]
     Active Substance: ACETAMINOPHEN\HYDROCODONE BITARTRATE
     Indication: PAIN
     Dosage: 7.5MG - 325MG
     Route: 048
  10. MORPHINE SULFATE. [Concomitant]
     Active Substance: MORPHINE SULFATE
     Indication: CANCER PAIN
     Dosage: 15-30MG, EVERY 2-3 HOURS
  11. IBUPROFEN. [Concomitant]
     Active Substance: IBUPROFEN
     Dosage: 200MG, Q8H
     Route: 048
     Dates: start: 20150427
  12. LORAZEPAM. [Concomitant]
     Active Substance: LORAZEPAM
     Indication: NAUSEA
     Dosage: 1MG, Q4H
     Route: 048

REACTIONS (20)
  - Rash pruritic [Recovered/Resolved]
  - Decreased appetite [Recovering/Resolving]
  - Palmar-plantar erythrodysaesthesia syndrome [Recovering/Resolving]
  - Erythema [Recovering/Resolving]
  - Central nervous system lesion [None]
  - Dehydration [None]
  - Pain in extremity [Recovering/Resolving]
  - Skin exfoliation [Recovering/Resolving]
  - Personality change [None]
  - Confusional state [None]
  - Nausea [Recovered/Resolved]
  - Pain [None]
  - Arthralgia [None]
  - Psoriasis [None]
  - Colorectal cancer metastatic [None]
  - Constipation [None]
  - Vomiting [Recovered/Resolved]
  - Stomatitis [None]
  - Performance status decreased [Recovering/Resolving]
  - Abdominal tenderness [None]

NARRATIVE: CASE EVENT DATE: 20150516
